FAERS Safety Report 16395856 (Version 1)
Quarter: 2019Q2

REPORT INFORMATION
  Report Type: Spontaneous
  Country: US (occurrence: US)
  Receive Date: 20190605
  Receipt Date: 20190605
  Transmission Date: 20190711
  Serious: Yes (Hospitalization, Other)
  Sender: FDA-Public Use
  Company Number: US-BAUSCH-BL-2019-016442

PATIENT
  Age: 56 Year
  Sex: Female

DRUGS (1)
  1. TRULANCE [Suspect]
     Active Substance: PLECANATIDE
     Indication: CONSTIPATION
     Route: 048
     Dates: start: 201805, end: 20190501

REACTIONS (5)
  - Transient ischaemic attack [Unknown]
  - Product dose omission [Unknown]
  - Accident [Unknown]
  - Head injury [Unknown]
  - Pain [Unknown]

NARRATIVE: CASE EVENT DATE: 201810
